FAERS Safety Report 17498419 (Version 1)
Quarter: 2020Q1

REPORT INFORMATION
  Report Type: Report from Study
  Country: None (occurrence: CO)
  Receive Date: 20200304
  Receipt Date: 20200304
  Transmission Date: 20200409
  Serious: Yes (Death, Hospitalization)
  Sender: FDA-Public Use
  Company Number: CO-ABBVIE-20K-036-3304190-00

PATIENT
  Sex: Male

DRUGS (1)
  1. IMBRUVICA [Suspect]
     Active Substance: IBRUTINIB
     Indication: MANTLE CELL LYMPHOMA
     Route: 048

REACTIONS (4)
  - Decreased appetite [Unknown]
  - Pyrexia [Unknown]
  - Unresponsive to stimuli [Unknown]
  - Cardiac arrest [Fatal]

NARRATIVE: CASE EVENT DATE: 202002
